FAERS Safety Report 5289071-0 (Version None)
Quarter: 2007Q1

REPORT INFORMATION
  Report Type: 
  Country: None (occurrence: None)
  Receive Date: 20070116
  Receipt Date: 20060106
  Transmission Date: 20070707
  Serious: Yes (Hospitalization)
  Sender: FDA-Public Use
  Company Number: FEI2005-2984

PATIENT
  Age: 28 Year
  Sex: Female

DRUGS (2)
  1. INTRAUTERINE COPPER CONTRACEPTIVE [Suspect]
     Indication: CONTRACEPTION
     Dosage: INTRA-UTERINE
     Route: 015
     Dates: start: 20020801, end: 20050101
  2. PRENATAL VITAMINS (PRENATAL VITAMINS /01549301/) [Suspect]
     Dosage: DAILY, ORAL
     Route: 048
     Dates: start: 20050101, end: 20050101

REACTIONS (8)
  - DEHYDRATION [None]
  - MALAISE [None]
  - MENORRHAGIA [None]
  - MENSTRUATION IRREGULAR [None]
  - UNINTENDED PREGNANCY [None]
  - UTERINE CONTRACTIONS DURING PREGNANCY [None]
  - UTERINE HAEMORRHAGE [None]
  - VAGINAL HAEMORRHAGE [None]
